FAERS Safety Report 8123225-0 (Version None)
Quarter: 2012Q1

REPORT INFORMATION
  Report Type: 
  Country: None (occurrence: None)
  Receive Date: 20120208
  Receipt Date: 20120126
  Transmission Date: 20120608
  Serious: Yes (Hospitalization)
  Sender: FDA-Public Use
  Company Number: IN-MYLANLABS-2012S1002021

PATIENT
  Age: 21 Year
  Sex: Male

DRUGS (1)
  1. BACLOFEN [Suspect]
     Indication: OVERDOSE
     Dosage: ALLEGEDLY CONSUMED 10 TABLETS OF EXTENDED-RELEASE BACLOFEN (20MG)
     Route: 048

REACTIONS (4)
  - TACHYPNOEA [None]
  - RESPIRATORY FAILURE [None]
  - COMA [None]
  - OVERDOSE [None]
